FAERS Safety Report 14873718 (Version 2)
Quarter: 2018Q2

REPORT INFORMATION
  Report Type: Report from Study
  Country: None (occurrence: HU)
  Receive Date: 20180510
  Receipt Date: 20180601
  Transmission Date: 20180711
  Serious: Yes (Death, Hospitalization)
  Sender: FDA-Public Use
  Company Number: HU-ABBVIE-18K-076-2350650-00

PATIENT
  Age: 65 Year
  Sex: Female

DRUGS (9)
  1. DUODOPA [Suspect]
     Active Substance: CARBIDOPA\LEVODOPA
     Indication: PARKINSON^S DISEASE
     Dosage: MORNING DOSE 3.5ML; CONTINUOUS DOSE 2.0ML/H; EXTRA DOSE 1.6ML
     Route: 050
     Dates: start: 20150122, end: 20180507
  2. FRONTIN [Concomitant]
     Active Substance: ALPRAZOLAM
     Indication: DEPRESSION
     Dosage: MORNING,NOON: 0.5-0.5TBLS, EVENING:1TBL
     Route: 048
     Dates: start: 2009
  3. MADOPAR [Concomitant]
     Active Substance: BENSERAZIDE HYDROCHLORIDE\LEVODOPA
     Indication: PARKINSON^S DISEASE
     Dosage: 1 TABLET AT NIGHT
     Route: 048
     Dates: start: 2001
  4. APO-FAMOTIDIN [Concomitant]
     Indication: PROPHYLAXIS
     Dosage: 1 TABLET IN THE MORNING
     Route: 048
     Dates: start: 2011
  5. BETALOC [Concomitant]
     Active Substance: METOPROLOL TARTRATE
     Indication: TACHYCARDIA
     Route: 048
     Dates: start: 2012
  6. DUCILITA [Concomitant]
     Indication: NEURALGIA
     Dosage: 1 TABLET IN THE MORNING
     Route: 048
     Dates: start: 20170824
  7. PARNASSAN [Concomitant]
     Active Substance: OLANZAPINE
     Indication: DEPRESSION
     Dosage: 5MG IN THE EVENING
     Route: 048
     Dates: start: 20170907
  8. THIOGAMMA [Concomitant]
     Active Substance: THIOCTIC ACID
     Indication: NEUROPATHY PERIPHERAL
     Dosage: 600MG IN THE MORNING
     Route: 048
     Dates: start: 20170824
  9. MADOPAR HBS [Concomitant]
     Active Substance: BENSERAZIDE HYDROCHLORIDE\LEVODOPA
     Indication: PARKINSON^S DISEASE
     Dosage: 2 TABLETS IN THE EVENING
     Route: 048
     Dates: start: 2015

REACTIONS (2)
  - Cardiac failure [Fatal]
  - Anaemia [Fatal]

NARRATIVE: CASE EVENT DATE: 20180503
